FAERS Safety Report 5609918-5 (Version None)
Quarter: 2008Q1

REPORT INFORMATION
  Report Type: 
  Country: None (occurrence: None)
  Receive Date: 20080131
  Receipt Date: 20080118
  Transmission Date: 20080703
  Serious: Yes (Death)
  Sender: FDA-Public Use
  Company Number: GB-ELI_LILLY_AND_COMPANY-GB200801004169

PATIENT
  Age: 63 Year
  Sex: Male

DRUGS (2)
  1. CYMBALTA [Suspect]
     Indication: DEPRESSION
     Dosage: UNK, UNKNOWN
     Route: 048
     Dates: start: 20080104
  2. DEPIXOL [Concomitant]
     Indication: SCHIZOPHRENIA
     Dosage: UNK, EVERY FOUR WEEKS
     Route: 030

REACTIONS (1)
  - CARDIAC ARREST [None]
